FAERS Safety Report 12925061 (Version 1)
Quarter: 2016Q4

REPORT INFORMATION
  Report Type: Spontaneous
  Country: US (occurrence: US)
  Receive Date: 20161109
  Receipt Date: 20161109
  Transmission Date: 20170207
  Serious: No
  Sender: FDA-Public Use
  Company Number: US-PFIZER INC-2016516654

PATIENT

DRUGS (1)
  1. GABAPENTIN. [Suspect]
     Active Substance: GABAPENTIN
     Dosage: UNK

REACTIONS (6)
  - Feeling abnormal [Unknown]
  - Malaise [Unknown]
  - Mobility decreased [Unknown]
  - Pain [Unknown]
  - Condition aggravated [Unknown]
  - Drug effect incomplete [Unknown]
